FAERS Safety Report 15965067 (Version 2)
Quarter: 2019Q1

REPORT INFORMATION
  Report Type: Spontaneous
  Country: US (occurrence: US)
  Receive Date: 20190215
  Receipt Date: 20190301
  Transmission Date: 20190418
  Serious: Yes (Other)
  Sender: FDA-Public Use
  Company Number: US-009507513-1902USA004380

PATIENT
  Age: 22 Year
  Sex: Male

DRUGS (2)
  1. FK-506 [Concomitant]
     Active Substance: TACROLIMUS
     Dosage: UNK
  2. REBETOL [Suspect]
     Active Substance: RIBAVIRIN
     Indication: PARAINFLUENZAE VIRUS INFECTION
     Dosage: 200 MILLIGRAM (7 MG/KG/D), TWICE DAILY
     Route: 048

REACTIONS (2)
  - Off label use [Unknown]
  - Haemolytic anaemia [Recovered/Resolved]
